FAERS Safety Report 7688829-8 (Version None)
Quarter: 2011Q3

REPORT INFORMATION
  Report Type: 
  Country: None (occurrence: None)
  Receive Date: 20110817
  Receipt Date: 20110808
  Transmission Date: 20111222
  Serious: Yes (Hospitalization, Disabling, Other)
  Sender: FDA-Public Use
  Company Number: PHEH2009US16948

PATIENT
  Sex: Male

DRUGS (10)
  1. ZOMETA [Suspect]
     Indication: MULTIPLE MYELOMA
  2. COUMADIN [Concomitant]
  3. CYPROHEPTADINE HCL [Concomitant]
  4. OXYCODONE HCL [Concomitant]
  5. COREG [Concomitant]
  6. LASIX [Concomitant]
  7. ASPIRIN [Concomitant]
  8. PROMETHAZINE [Concomitant]
  9. SULFADIAZINE [Concomitant]
  10. LORAZEPAM [Concomitant]

REACTIONS (31)
  - DYSPNOEA EXERTIONAL [None]
  - INTERVERTEBRAL DISC DEGENERATION [None]
  - OEDEMA [None]
  - VENTRICULAR HYPOKINESIA [None]
  - TENOSYNOVITIS [None]
  - ASTHENIA [None]
  - PNEUMONIA [None]
  - PLEURAL EFFUSION [None]
  - SQUAMOUS CELL CARCINOMA [None]
  - HYPOKALAEMIA [None]
  - PULMONARY GRANULOMA [None]
  - PAIN [None]
  - ANHEDONIA [None]
  - CARDIOMYOPATHY [None]
  - ARTHRALGIA [None]
  - INJURY [None]
  - ARTHRITIS [None]
  - SEBORRHOEIC DERMATITIS [None]
  - SKIN LESION [None]
  - OSTEONECROSIS OF JAW [None]
  - ANXIETY [None]
  - CELLULITIS [None]
  - SKIN CANCER [None]
  - MUSCULOSKELETAL PAIN [None]
  - LEFT VENTRICULAR DYSFUNCTION [None]
  - INFECTION [None]
  - HYPOAESTHESIA [None]
  - GASTROOESOPHAGEAL REFLUX DISEASE [None]
  - SLEEP APNOEA SYNDROME [None]
  - OSTEOMYELITIS [None]
  - NEOPLASM MALIGNANT [None]
